FAERS Safety Report 6439059-9 (Version None)
Quarter: 2009Q4

REPORT INFORMATION
  Report Type: 
  Country: None (occurrence: None)
  Receive Date: 20091106
  Receipt Date: 20091104
  Transmission Date: 20100525
  Serious: Yes (Other)
  Sender: FDA-Public Use
  Company Number: A0815320A

PATIENT
  Sex: Female

DRUGS (1)
  1. BEANO TABLET (ALPHA-D-GALACTOSIDASE) [Suspect]
     Dosage: 2 TABLET / TWICE PER DAY / ORAL
     Route: 048

REACTIONS (3)
  - ABDOMINAL PAIN [None]
  - DIARRHOEA [None]
  - RECTAL HAEMORRHAGE [None]
